FAERS Safety Report 5168336-7 (Version None)
Quarter: 2006Q4

REPORT INFORMATION
  Report Type: 
  Country: None (occurrence: None)
  Receive Date: 20061129
  Receipt Date: 20061117
  Transmission Date: 20070319
  Serious: Yes (Hospitalization)
  Sender: FDA-Public Use
  Company Number: HQWYE518026JAN06

PATIENT
  Age: 50 Year
  Sex: Male

DRUGS (3)
  1. RAPAMUNE [Suspect]
     Indication: PROPHYLAXIS AGAINST TRANSPLANT REJECTION
     Dosage: 6 MG 1X PER 1 DAY
     Route: 048
     Dates: start: 20051207, end: 20060120
  2. LAMIVUDINE [Concomitant]
  3. ADALAT - SLOW RELEASE (NIFEDIPINE) [Concomitant]

REACTIONS (4)
  - BLOOD POTASSIUM DECREASED [None]
  - IMMUNOSUPPRESSANT DRUG LEVEL INCREASED [None]
  - LIVER TRANSPLANT REJECTION [None]
  - RASH [None]
